FAERS Safety Report 7915130-7 (Version None)
Quarter: 2011Q4

REPORT INFORMATION
  Report Type: 
  Country: None (occurrence: None)
  Receive Date: 20111115
  Receipt Date: 20111103
  Transmission Date: 20120403
  Serious: Yes (Hospitalization)
  Sender: FDA-Public Use
  Company Number: US-ACTELION-A-NJ2011-47681

PATIENT

DRUGS (5)
  1. TRACLEER [Suspect]
     Indication: PULMONARY ARTERIAL HYPERTENSION
     Dosage: UNK
     Route: 048
     Dates: start: 20110408
  2. OXYGEN [Concomitant]
  3. COUMADIN [Concomitant]
  4. ADCIRCA [Concomitant]
  5. REVATIO [Concomitant]

REACTIONS (6)
  - FLUID RETENTION [None]
  - BRONCHITIS [None]
  - OEDEMA [None]
  - DYSPNOEA [None]
  - POLLAKIURIA [None]
  - COUGH [None]
